FAERS Safety Report 6753921-9 (Version None)
Quarter: 2010Q2

REPORT INFORMATION
  Report Type: 
  Country: None (occurrence: None)
  Receive Date: 20100601
  Receipt Date: 20100517
  Transmission Date: 20101027
  Serious: Yes (Life-Threatening, Hospitalization)
  Sender: FDA-Public Use
  Company Number: 7004684

PATIENT
  Age: 55 Year
  Sex: Female

DRUGS (2)
  1. REBIF [Suspect]
     Indication: DRUG USE FOR UNKNOWN INDICATION
     Dosage: 44 MCG, 3 IN 1 WK, SUBCUTANEOUS, 8.8 MCG, SUBCUTANEOUS
     Route: 058
     Dates: start: 20090909, end: 20100106
  2. REBIF [Suspect]
     Indication: DRUG USE FOR UNKNOWN INDICATION
     Dosage: 44 MCG, 3 IN 1 WK, SUBCUTANEOUS, 8.8 MCG, SUBCUTANEOUS
     Route: 058
     Dates: start: 20100514

REACTIONS (5)
  - CSF PROTEIN INCREASED [None]
  - ENCEPHALITIS [None]
  - GRAND MAL CONVULSION [None]
  - PNEUMONIA [None]
  - URINARY TRACT INFECTION [None]
